FAERS Safety Report 17070218 (Version 1)
Quarter: 2019Q4

REPORT INFORMATION
  Report Type: Spontaneous
  Country: FR (occurrence: FR)
  Receive Date: 20191125
  Receipt Date: 20191125
  Transmission Date: 20200122
  Serious: Yes (Other)
  Sender: FDA-Public Use
  Company Number: FR-ELI_LILLY_AND_COMPANY-FR201911007687

PATIENT
  Age: 29 Year
  Sex: Female

DRUGS (5)
  1. ALMOGRAN [Concomitant]
     Active Substance: ALMOTRIPTAN MALATE
     Indication: MIGRAINE
  2. FORSTEO 250UG/ML [Suspect]
     Active Substance: TERIPARATIDE
     Indication: HYPOCALCAEMIA
     Dosage: 20 UG, EACH MORNING
     Route: 065
     Dates: start: 2018
  3. LEVOTHYROX [Concomitant]
     Active Substance: LEVOTHYROXINE
     Indication: THYROIDECTOMY
  4. FORSTEO 250UG/ML [Suspect]
     Active Substance: TERIPARATIDE
     Indication: HYPERCALCIURIA
     Dosage: 20 UG, EACH EVENING
     Route: 065
     Dates: start: 2018
  5. FORSTEO 250UG/ML [Suspect]
     Active Substance: TERIPARATIDE
     Indication: PARATHYROIDECTOMY

REACTIONS (9)
  - Malaise [Unknown]
  - Pelvic pain [Unknown]
  - Fatigue [Unknown]
  - Pain [Unknown]
  - Off label use [Not Recovered/Not Resolved]
  - Hypocalcaemia [Unknown]
  - Inappropriate schedule of product administration [Unknown]
  - Paralysis [Unknown]
  - Overdose [Unknown]

NARRATIVE: CASE EVENT DATE: 201908
